FAERS Safety Report 11695801 (Version 1)
Quarter: 2015Q4

REPORT INFORMATION
  Report Type: Spontaneous
  Country: US (occurrence: None)
  Receive Date: 20151103
  Receipt Date: 20151103
  Transmission Date: 20160304
  Serious: Yes (Life-Threatening, Disabling)
  Sender: FDA-Public Use
  Company Number: None

PATIENT
  Age: 64 Year
  Sex: Female
  Weight: 70.31 kg

DRUGS (8)
  1. HYDROCODONE [Concomitant]
     Active Substance: HYDROCODONE
  2. IBUPROFEN. [Concomitant]
     Active Substance: IBUPROFEN
  3. CLARITIN [Concomitant]
     Active Substance: LORATADINE
  4. PROBIOTICS [Concomitant]
     Active Substance: PROBIOTICS NOS
  5. CIPROFLOXACIN HCL 500MG [Suspect]
     Active Substance: CIPROFLOXACIN HYDROCHLORIDE
     Indication: COLITIS
     Route: 048
     Dates: start: 20150815, end: 20150825
  6. CIPROFLOXACIN HCL 500MG [Suspect]
     Active Substance: CIPROFLOXACIN HYDROCHLORIDE
     Indication: INFECTION
     Route: 048
     Dates: start: 20150815, end: 20150825
  7. NEXIUM [Concomitant]
     Active Substance: ESOMEPRAZOLE MAGNESIUM
  8. SOMA [Concomitant]
     Active Substance: CARISOPRODOL

REACTIONS (11)
  - Pyrexia [None]
  - Muscular weakness [None]
  - Fatigue [None]
  - Thinking abnormal [None]
  - Weight decreased [None]
  - Arthralgia [None]
  - Flank pain [None]
  - Disorientation [None]
  - Asthenia [None]
  - Rash generalised [None]
  - Urticaria [None]

NARRATIVE: CASE EVENT DATE: 20150815
